FAERS Safety Report 7969784-X (Version None)
Quarter: 2011Q4

REPORT INFORMATION
  Report Type: 
  Country: None (occurrence: None)
  Receive Date: 20111212
  Receipt Date: 20111209
  Transmission Date: 20120403
  Serious: Yes (Other)
  Sender: FDA-Public Use
  Company Number: US-PFIZER INC-2011285355

PATIENT
  Sex: Female
  Weight: 113.38 kg

DRUGS (7)
  1. ZOLOFT [Suspect]
     Indication: DEPRESSION
     Dosage: 25 MG, 1X/DAY
     Route: 048
     Dates: start: 20111101, end: 20111201
  2. ZOLOFT [Suspect]
     Indication: EMOTIONAL DISORDER
  3. LEXAPRO [Suspect]
     Dosage: UNK
  4. ABILIFY [Concomitant]
     Indication: DEPRESSION
     Dosage: UNK
  5. ZOLOFT [Suspect]
     Indication: SOCIAL AVOIDANT BEHAVIOUR
  6. CYMBALTA [Suspect]
     Dosage: UNK
  7. ATIVAN [Concomitant]
     Dosage: UNK

REACTIONS (5)
  - BACK PAIN [None]
  - DRUG INEFFECTIVE [None]
  - EMOTIONAL DISORDER [None]
  - DEPRESSION [None]
  - SOCIAL AVOIDANT BEHAVIOUR [None]
